FAERS Safety Report 23436648 (Version 1)
Quarter: 2024Q1

REPORT INFORMATION
  Report Type: Spontaneous
  Country: GB (occurrence: None)
  Receive Date: 20240124
  Receipt Date: 20240124
  Transmission Date: 20240409
  Serious: Yes (Hospitalization, Other)
  Sender: FDA-Public Use
  Company Number: GB-ROCHE-2570973

PATIENT
  Age: 49 Year
  Sex: Female

DRUGS (1)
  1. HERCEPTIN [Suspect]
     Active Substance: TRASTUZUMAB
     Indication: Breast cancer
     Dosage: //2014, RECEIVED DOSE OF HERCEPTIN.
     Route: 058
     Dates: start: 20131001

REACTIONS (13)
  - Malaise [Unknown]
  - Eczema infected [Unknown]
  - Ligament sprain [Unknown]
  - Epistaxis [Unknown]
  - Stress [Unknown]
  - Fatigue [Unknown]
  - Infection [Unknown]
  - Wound infection [Unknown]
  - Hypertension [Unknown]
  - Walking aid user [Unknown]
  - COVID-19 [Unknown]
  - Vaginal haemorrhage [Unknown]
  - Uterine enlargement [Not Recovered/Not Resolved]
